FAERS Safety Report 9249828 (Version 1)
Quarter: 2013Q2

REPORT INFORMATION
  Report Type: Spontaneous
  Country: FR (occurrence: FR)
  Receive Date: 20130423
  Receipt Date: 20130423
  Transmission Date: 20140414
  Serious: Yes (Hospitalization)
  Sender: FDA-Public Use
  Company Number: PHHY2013FR038010

PATIENT
  Age: 76 Year
  Sex: Female

DRUGS (8)
  1. VOLTARENE [Suspect]
     Dosage: 1 DF, TID
     Dates: start: 20130311, end: 20130321
  2. INNOHEP [Suspect]
     Indication: ANTICOAGULANT THERAPY
     Dosage: 0.8 ML, QD
     Route: 058
     Dates: start: 20130311, end: 20130324
  3. LANTUS [Concomitant]
     Dosage: UNK UKN, UNK
  4. LYRICA [Concomitant]
     Dosage: UNK UKN, UNK
  5. PROTON PUMP INHIBITORS [Concomitant]
     Dosage: UNK UKN, UNK
  6. CORDARONE [Concomitant]
     Dosage: UNK UKN, UNK
  7. LASILIX [Concomitant]
     Dosage: UNK UKN, UNK
  8. ALDACTONE [Concomitant]
     Dosage: UNK UKN, UNK

REACTIONS (2)
  - Haematoma [Recovering/Resolving]
  - Coagulation time prolonged [Recovered/Resolved]
